FAERS Safety Report 6244720-5 (Version None)
Quarter: 2009Q2

REPORT INFORMATION
  Report Type: 
  Country: None (occurrence: None)
  Receive Date: 20090623
  Receipt Date: 20090623
  Transmission Date: 20091009
  Serious: Yes (Hospitalization)
  Sender: FDA-Public Use
  Company Number: None

PATIENT
  Age: 56 Year
  Sex: Female
  Weight: 85.6 kg

DRUGS (23)
  1. COUMADIN [Suspect]
     Indication: CORONARY ARTERY DISEASE
     Dosage: 5/2.5 FSS/MTWTH PO CHRONIC
     Route: 048
  2. DICLOFENAC [Suspect]
  3. ACYCLOVIR [Concomitant]
  4. AMITIZA [Concomitant]
  5. ARIMIDEX [Concomitant]
  6. BONIVA [Concomitant]
  7. BUMEX [Concomitant]
  8. LANTUS [Concomitant]
  9. PREDNISONE [Concomitant]
  10. CYMBALTA [Concomitant]
  11. NEXIUM [Concomitant]
  12. LEVOTHYROXINE SODIUM [Concomitant]
  13. LIPITOR [Concomitant]
  14. LYRICA [Concomitant]
  15. MEGACE [Concomitant]
  16. M.V.I. [Concomitant]
  17. NEURONTIN [Concomitant]
  18. PERCOCET [Concomitant]
  19. POTASSIUM CHLORIDE [Concomitant]
  20. SEROQUEL [Concomitant]
  21. SKELAXIN [Concomitant]
  22. VERAPOMIL [Concomitant]
  23. ZANTAC [Concomitant]

REACTIONS (7)
  - ANAEMIA [None]
  - HAEMODIALYSIS [None]
  - INTERNATIONAL NORMALISED RATIO INCREASED [None]
  - LARGE INTESTINAL ULCER [None]
  - LOWER GASTROINTESTINAL HAEMORRHAGE [None]
  - ORTHOSTATIC HYPERTENSION [None]
  - RENAL IMPAIRMENT [None]
